FAERS Safety Report 7674541-8 (Version None)
Quarter: 2011Q3

REPORT INFORMATION
  Report Type: 
  Country: None (occurrence: None)
  Receive Date: 20110810
  Receipt Date: 20110801
  Transmission Date: 20111222
  Serious: Yes (Hospitalization, Other)
  Sender: FDA-Public Use
  Company Number: PHFR2011GB04534

PATIENT
  Sex: Male

DRUGS (1)
  1. CLOZAPINE [Suspect]
     Indication: SCHIZOPHRENIA
     Route: 048
     Dates: start: 20011109, end: 20110701

REACTIONS (7)
  - DIFFERENTIAL WHITE BLOOD CELL COUNT ABNORMAL [None]
  - LACERATION [None]
  - UPPER LIMB FRACTURE [None]
  - HAEMOGLOBIN DECREASED [None]
  - LIMB INJURY [None]
  - SUICIDE ATTEMPT [None]
  - CONTUSION [None]
